FAERS Safety Report 26141549 (Version 1)
Quarter: 2025Q4

REPORT INFORMATION
  Report Type: Spontaneous
  Country: US (occurrence: US)
  Receive Date: 20251210
  Receipt Date: 20251210
  Transmission Date: 20260117
  Serious: No
  Sender: PFIZER
  Company Number: US-PFIZER INC-PV202500119292

PATIENT

DRUGS (2)
  1. LORBRENA [Suspect]
     Active Substance: LORLATINIB
     Indication: Lung neoplasm malignant
     Dosage: UNK
  2. LORBRENA [Suspect]
     Active Substance: LORLATINIB
     Indication: Bronchial carcinoma

REACTIONS (2)
  - Off label use [Unknown]
  - Product physical issue [Unknown]
